FAERS Safety Report 6767578-4 (Version None)
Quarter: 2010Q2

REPORT INFORMATION
  Report Type: 
  Country: None (occurrence: None)
  Receive Date: 20100614
  Receipt Date: 20100607
  Transmission Date: 20101027
  Serious: Yes (Death, Other)
  Sender: FDA-Public Use
  Company Number: PHHY2010US34961

PATIENT
  Sex: Female

DRUGS (8)
  1. RECLAST [Suspect]
     Dosage: 5MG/100ML
     Route: 042
     Dates: start: 20090306
  2. OMEPRAZOLE [Concomitant]
  3. LOPRESSOR [Concomitant]
  4. LISINOPRIL [Concomitant]
  5. FOLIC ACID [Concomitant]
  6. CELEBREX [Concomitant]
  7. AGGRENOX [Concomitant]
  8. ARICEPT [Concomitant]

REACTIONS (23)
  - ABASIA [None]
  - AMNESIA [None]
  - ARTHRITIS [None]
  - ARTHROPATHY [None]
  - ATROPHY [None]
  - BALANCE DISORDER [None]
  - CEREBRAL VENTRICLE DILATATION [None]
  - CEREBROVASCULAR ACCIDENT [None]
  - CONNECTIVE TISSUE DISORDER [None]
  - DEATH [None]
  - DECREASED APPETITE [None]
  - DEPRESSION [None]
  - DYSSTASIA [None]
  - FEELING COLD [None]
  - GAIT DISTURBANCE [None]
  - GENERAL PHYSICAL HEALTH DETERIORATION [None]
  - HYPOREFLEXIA [None]
  - INCONTINENCE [None]
  - LUPUS-LIKE SYNDROME [None]
  - NERVOUS SYSTEM DISORDER [None]
  - SENILE DEMENTIA [None]
  - TREMOR [None]
  - UNRESPONSIVE TO STIMULI [None]
